FAERS Safety Report 24398820 (Version 5)
Quarter: 2024Q4

REPORT INFORMATION
  Report Type: Spontaneous
  Country: US (occurrence: US)
  Receive Date: 20241004
  Receipt Date: 20241217
  Transmission Date: 20250115
  Serious: Yes (Hospitalization, Disabling, Other)
  Sender: BIOMARIN
  Company Number: US-SA-2024SA280422

PATIENT

DRUGS (8)
  1. ALDURAZYME [Suspect]
     Active Substance: LARONIDASE
     Indication: Mucopolysaccharidosis I
     Dosage: 46.4 MG, QW
     Route: 042
     Dates: start: 202202, end: 2024
  2. ALDURAZYME [Suspect]
     Active Substance: LARONIDASE
     Dosage: 46.4 MG, QW
     Route: 042
     Dates: start: 2024
  3. SODIUM CHLORIDE [Concomitant]
     Active Substance: SODIUM CHLORIDE
     Indication: Product used for unknown indication
     Dosage: UNK
  4. LIDOCAINE\PRILOCAINE [Concomitant]
     Active Substance: LIDOCAINE\PRILOCAINE
     Indication: Product used for unknown indication
     Dosage: UNK
  5. SODIUM CHLORIDE [Concomitant]
     Active Substance: SODIUM CHLORIDE
     Indication: Product used for unknown indication
     Dosage: UNK
  6. DIPHENHYDRAMINE [Concomitant]
     Active Substance: DIPHENHYDRAMINE
     Indication: Product used for unknown indication
     Dosage: UNK
  7. EPINEPHRINE [Concomitant]
     Active Substance: EPINEPHRINE
     Indication: Product used for unknown indication
     Dosage: UNK
  8. HEPARIN [Concomitant]
     Active Substance: HEPARIN SODIUM
     Indication: Product used for unknown indication
     Dosage: UNK

REACTIONS (10)
  - Myocardial infarction [Unknown]
  - Pneumonia [Unknown]
  - Cardiac failure congestive [Unknown]
  - Troponin increased [Unknown]
  - Mucopolysaccharidosis I [Unknown]
  - Condition aggravated [Unknown]
  - Hypokinesia [Unknown]
  - Asthenia [Unknown]
  - Weight decreased [Not Recovered/Not Resolved]
  - Skin disorder [Unknown]

NARRATIVE: CASE EVENT DATE: 20240101
